FAERS Safety Report 9079197 (Version 3)
Quarter: 2013Q2

REPORT INFORMATION
  Report Type: Spontaneous
  Country: US (occurrence: US)
  Receive Date: 20130215
  Receipt Date: 20130409
  Transmission Date: 20140414
  Serious: Yes (Hospitalization, Other)
  Sender: FDA-Public Use
  Company Number: US-PFIZER INC-2013056158

PATIENT
  Age: 30 Year
  Sex: Male
  Weight: 145 kg

DRUGS (1)
  1. BENEFIX [Suspect]
     Indication: FACTOR IX DEFICIENCY
     Dosage: 30 IU/KG, AS NEEDED, FACTOR IS ADMINISTERED ONLY WHEN THERE IS BLEEDING

REACTIONS (4)
  - Disease complication [Unknown]
  - Haemorrhage [Unknown]
  - Surgery [Unknown]
  - Joint injury [Unknown]
